FAERS Safety Report 7025741-1 (Version None)
Quarter: 2010Q4

REPORT INFORMATION
  Report Type: 
  Country: None (occurrence: None)
  Receive Date: 20101004
  Receipt Date: 20100929
  Transmission Date: 20110411
  Serious: Yes (Hospitalization)
  Sender: FDA-Public Use
  Company Number: US-BIOGENIDEC-2010BI033737

PATIENT
  Age: 45 Year
  Sex: Female

DRUGS (14)
  1. TYSABRI [Suspect]
     Indication: MULTIPLE SCLEROSIS
     Route: 042
     Dates: start: 20090128
  2. XANAX [Concomitant]
     Indication: PRODUCT USED FOR UNKNOWN INDICATION
     Route: 048
  3. NORVASC [Concomitant]
     Indication: HYPERTENSION
     Route: 048
  4. ASCORBIC ACID [Concomitant]
     Indication: PRODUCT USED FOR UNKNOWN INDICATION
     Route: 048
  5. BROMOCRIPTINE [Concomitant]
     Indication: PRODUCT USED FOR UNKNOWN INDICATION
     Route: 048
  6. ROCALTROL [Concomitant]
     Indication: PRODUCT USED FOR UNKNOWN INDICATION
     Route: 048
  7. CALCIUM CARBONATE [Concomitant]
     Indication: PRODUCT USED FOR UNKNOWN INDICATION
     Route: 048
  8. VITAMIN B-12 [Concomitant]
     Indication: PRODUCT USED FOR UNKNOWN INDICATION
     Dosage: DOSE UNIT:1000
     Route: 058
  9. BENADRYL [Concomitant]
     Indication: PRURITUS
     Route: 048
  10. COLACE [Concomitant]
     Indication: CONSTIPATION
     Route: 048
  11. VITAMIN D [Concomitant]
     Route: 048
  12. ATARAX [Concomitant]
     Indication: PRURITUS
     Route: 048
  13. MULTIPLE VITAMIN [Concomitant]
     Indication: PRODUCT USED FOR UNKNOWN INDICATION
     Route: 048
  14. SENOKOT [Concomitant]
     Indication: CONSTIPATION
     Route: 048

REACTIONS (1)
  - DEEP VEIN THROMBOSIS [None]
